FAERS Safety Report 7444612-X (Version None)
Quarter: 2011Q2

REPORT INFORMATION
  Report Type: 
  Country: None (occurrence: None)
  Receive Date: 20110429
  Receipt Date: 20110421
  Transmission Date: 20111010
  Serious: Yes (Death, Hospitalization, Other)
  Sender: FDA-Public Use
  Company Number: US-BAYER-2010-008667

PATIENT
  Age: 58 Year
  Sex: Male

DRUGS (1)
  1. SORAFENIB (RAF KINASE INHIBITOR) [Suspect]
     Indication: HEPATIC NEOPLASM MALIGNANT
     Dosage: 400 MG, BID
     Route: 048
     Dates: start: 20101209, end: 20110207

REACTIONS (8)
  - DEATH [None]
  - BLOOD PRESSURE INCREASED [None]
  - FATIGUE [None]
  - DIARRHOEA [None]
  - DEPRESSED MOOD [None]
  - DRY SKIN [None]
  - SKIN EXFOLIATION [None]
  - RECTAL HAEMORRHAGE [None]
